FAERS Safety Report 5350960-X (Version None)
Quarter: 2007Q2

REPORT INFORMATION
  Report Type: 
  Country: None (occurrence: None)
  Receive Date: 20070608
  Receipt Date: 20070528
  Transmission Date: 20071010
  Serious: No
  Sender: FDA-Public Use
  Company Number: IT-JNJFOC-20070400876

PATIENT
  Age: 69 Year
  Sex: Male

DRUGS (10)
  1. TOPAMAX [Suspect]
     Indication: ESSENTIAL TREMOR
     Route: 065
  2. LOSAPREX [Concomitant]
  3. MYSOLINE [Concomitant]
     Indication: ESSENTIAL TREMOR
  4. CORDAIRONE [Concomitant]
     Indication: HYPERTENSION
  5. LASIX [Concomitant]
     Indication: HYPERTENSION
  6. ALDACTONE [Concomitant]
     Indication: HYPERTENSION
  7. ASPIRIN [Concomitant]
     Indication: CARDIAC DISORDER
  8. ATORVASTAINE [Concomitant]
     Indication: HYPERCHOLESTEROLAEMIA
  9. VERAPAMIL [Concomitant]
  10. CRESTOR [Concomitant]

REACTIONS (4)
  - ASTHENIA [None]
  - EXTRASYSTOLES [None]
  - HEART RATE INCREASED [None]
  - MALAISE [None]
